FAERS Safety Report 23943998 (Version 1)
Quarter: 2024Q2

REPORT INFORMATION
  Report Type: Spontaneous
  Country: AT (occurrence: AT)
  Receive Date: 20240606
  Receipt Date: 20240606
  Transmission Date: 20240716
  Serious: Yes (Life-Threatening, Hospitalization, Other)
  Sender: FDA-Public Use
  Company Number: AT-CHEPLA-2024006789

PATIENT
  Age: 18 Year
  Sex: Male

DRUGS (8)
  1. AZITHROMYCIN [Suspect]
     Active Substance: AZITHROMYCIN
     Indication: Product used for unknown indication
     Dosage: SINGLE DOSE; ADMINISTRATION INTERRUPTED DUE TO HAEMODYNAMIC DETERIORATION AND PULMONARY OEDEMA, CONT
     Route: 042
  2. ARGATROBAN [Suspect]
     Active Substance: ARGATROBAN
     Indication: Product used for unknown indication
     Dosage: UNK
     Route: 065
  3. DAPTOMYCIN [Suspect]
     Active Substance: DAPTOMYCIN
     Indication: Product used for unknown indication
     Dosage: UNK
     Route: 065
  4. DOBUTAMINE [Suspect]
     Active Substance: DOBUTAMINE HYDROCHLORIDE
     Indication: Product used for unknown indication
     Dosage: UNK
     Route: 065
  5. NOREPINEPHRINE [Suspect]
     Active Substance: NOREPINEPHRINE\NOREPINEPHRINE BITARTRATE
     Dosage: UNK
     Route: 065
  6. NOREPINEPHRINE [Suspect]
     Active Substance: NOREPINEPHRINE\NOREPINEPHRINE BITARTRATE
     Dosage: PEAK DOSE AFTER RE-ADMINISTRATION OF AZITHROMYCINUNK
     Route: 065
  7. NOREPINEPHRINE [Suspect]
     Active Substance: NOREPINEPHRINE\NOREPINEPHRINE BITARTRATE
     Indication: Product used for unknown indication
     Dosage: OVER 12 HOURS AFTER DISCONTINUATION OF AZITHROMYCIN THE DOSE COULD BE REDUCED TO A MINIMUMUNK
     Route: 065
  8. PIPERACILLIN AND TAZOBACTAM [Suspect]
     Active Substance: PIPERACILLIN SODIUM\TAZOBACTAM SODIUM
     Indication: Product used for unknown indication
     Dosage: UNK
     Route: 065

REACTIONS (7)
  - Hypotension [Recovered/Resolved]
  - Cardiogenic shock [Recovered/Resolved]
  - Sepsis [Unknown]
  - Disseminated intravascular coagulation [Unknown]
  - Heparin-induced thrombocytopenia [Unknown]
  - Thrombosis [Unknown]
  - Haemolysis [Unknown]
